FAERS Safety Report 24551932 (Version 1)
Quarter: 2024Q4

REPORT INFORMATION
  Report Type: Spontaneous
  Country: RU (occurrence: RU)
  Receive Date: 20241026
  Receipt Date: 20241026
  Transmission Date: 20250114
  Serious: Yes (Other)
  Sender: ABBVIE
  Company Number: RU-RICHTER-2024-GR-011496

PATIENT
  Age: 18 Year
  Sex: Female
  Weight: 83 kg

DRUGS (4)
  1. CARIPRAZINE [Suspect]
     Active Substance: CARIPRAZINE
     Indication: Schizophrenia
     Dosage: 3 MG
     Route: 048
     Dates: start: 20240801, end: 20240923
  2. BISOPROLOL FUMARATE [Concomitant]
     Active Substance: BISOPROLOL FUMARATE
     Indication: Product used for unknown indication
     Dosage: 2.5 MG
     Route: 048
  3. TRIMEPRAZINE TARTRATE [Suspect]
     Active Substance: TRIMEPRAZINE TARTRATE
     Indication: Schizophrenia
     Dosage: 5 MG
     Route: 048
     Dates: start: 20240723, end: 20240923
  4. FLUVOXAMINE MALEATE [Suspect]
     Active Substance: FLUVOXAMINE MALEATE
     Indication: Schizophrenia
     Dosage: 100 MG
     Route: 048
     Dates: start: 20240723, end: 20240923

REACTIONS (3)
  - Vomiting projectile [Recovering/Resolving]
  - Headache [Recovering/Resolving]
  - Tremor [Recovering/Resolving]

NARRATIVE: CASE EVENT DATE: 20240915
